FAERS Safety Report 4346392-3 (Version None)
Quarter: 2004Q1

REPORT INFORMATION
  Report Type: 
  Country: None (occurrence: None)
  Receive Date: 20040325
  Receipt Date: 20031124
  Transmission Date: 20041129
  Serious: No
  Sender: FDA-Public Use
  Company Number: USA030537841

PATIENT
  Age: 86 Year
  Sex: Female
  Weight: 47 kg

DRUGS (10)
  1. FORTEO [Suspect]
     Indication: OSTEOPOROSIS
     Dosage: 20 UG/DAY
     Dates: start: 20030516
  2. DYNACIRC [Concomitant]
  3. SYNTHROID [Concomitant]
  4. MIACALCIN [Concomitant]
  5. CALCIUM WITH VITAMIN D [Concomitant]
  6. PERCOCET [Concomitant]
  7. PREMARIN H-C VAGINAL CREAM [Concomitant]
  8. LACTAID (TILACTASE) [Concomitant]
  9. MULTIVITAMIN [Concomitant]
  10. STOOL SOFTENER (DOCUSATE SODIUM) [Concomitant]

REACTIONS (6)
  - DIZZINESS [None]
  - HEADACHE [None]
  - INJECTION SITE ERYTHEMA [None]
  - INJECTION SITE HAEMORRHAGE [None]
  - INJECTION SITE PAIN [None]
  - WEIGHT DECREASED [None]
